FAERS Safety Report 10257557 (Version 1)
Quarter: 2014Q2

REPORT INFORMATION
  Report Type: Report from Study
  Country: AU (occurrence: AU)
  Receive Date: 20140625
  Receipt Date: 20140625
  Transmission Date: 20141212
  Serious: Yes (Hospitalization)
  Sender: FDA-Public Use
  Company Number: PHHY2014AU078052

PATIENT
  Sex: 0

DRUGS (3)
  1. CLOZARIL [Suspect]
     Dosage: UNK
  2. CLOZARIL [Suspect]
     Dosage: 12.5 MG
  3. CLOZARIL [Suspect]
     Dosage: 100 MG, (THREE TIMES DAILY OVER THE WEEKEND)

REACTIONS (1)
  - Acute psychosis [Unknown]
